FAERS Safety Report 10871070 (Version 4)
Quarter: 2018Q4

REPORT INFORMATION
  Report Type: Report from Study
  Country: JP (occurrence: JP)
  Receive Date: 20150226
  Receipt Date: 20181023
  Transmission Date: 20190204
  Serious: Yes (Death)
  Sender: FDA-Public Use
  Company Number: JP-INCYTE CORPORATION-2015IN000722

PATIENT

DRUGS (2)
  1. JAKAVI [Suspect]
     Active Substance: RUXOLITINIB
     Indication: PRIMARY MYELOFIBROSIS
     Dosage: 15 MG, BID ((2 TABLETS IN THE MORNING, 1 TABLET IN THE EVENING))
     Route: 048
     Dates: start: 20141118
  2. RED BLOOD CELLS, CONCENTRATED [Concomitant]
     Active Substance: HUMAN RED BLOOD CELL
     Indication: PRIMARY MYELOFIBROSIS
     Dosage: 2 IU, QD
     Route: 065
     Dates: end: 20150202

REACTIONS (2)
  - Platelet count decreased [Not Recovered/Not Resolved]
  - Primary myelofibrosis [Fatal]

NARRATIVE: CASE EVENT DATE: 20141226
